FAERS Safety Report 4425962-8 (Version None)
Quarter: 2004Q3

REPORT INFORMATION
  Report Type: 
  Country: None (occurrence: None)
  Receive Date: 20040719
  Receipt Date: 20040526
  Transmission Date: 20050211
  Serious: No
  Sender: FDA-Public Use
  Company Number: A03200401765

PATIENT

DRUGS (1)
  1. UROXATRAL [Suspect]
     Dosage: ORAL
     Route: 048

REACTIONS (4)
  - AKATHISIA [None]
  - DYSKINESIA [None]
  - RESTLESS LEGS SYNDROME [None]
  - TREMOR [None]
